FAERS Safety Report 9866448 (Version 2)
Quarter: 2017Q2

REPORT INFORMATION
  Report Type: Report from Study
  Country: US (occurrence: US)
  Receive Date: 20140204
  Receipt Date: 20170629
  Transmission Date: 20170830
  Serious: Yes (Death)
  Sender: FDA-Public Use
  Company Number: US-ROCHE-1343009

PATIENT
  Sex: Female

DRUGS (20)
  1. ZELBORAF [Suspect]
     Active Substance: VEMURAFENIB
     Indication: MALIGNANT MELANOMA
     Route: 065
  2. LYRICA [Concomitant]
     Active Substance: PREGABALIN
     Route: 048
  3. VESICARE [Concomitant]
     Active Substance: SOLIFENACIN SUCCINATE
     Route: 048
  4. LEVOTHYROXINE SODIUM. [Concomitant]
     Active Substance: LEVOTHYROXINE SODIUM
     Route: 048
  5. TRILIPIX [Concomitant]
     Active Substance: FENOFIBRIC ACID
     Route: 048
  6. TOPROL XL [Concomitant]
     Active Substance: METOPROLOL SUCCINATE
  7. XANAX [Concomitant]
     Active Substance: ALPRAZOLAM
     Route: 048
  8. LIDODERM [Concomitant]
     Active Substance: LIDOCAINE
     Dosage: ADHESIVE PATCH
     Route: 061
  9. FLUTICASONE PROPIONATE. [Concomitant]
     Active Substance: FLUTICASONE PROPIONATE
     Route: 065
  10. METAMUCIL [Concomitant]
     Active Substance: PLANTAGO SEED
     Route: 048
  11. TYLENOL ARTHRITIS PAIN [Concomitant]
     Active Substance: ACETAMINOPHEN
     Route: 065
  12. NITROFURANTOIN MACROCRYSTALS [Concomitant]
     Active Substance: NITROFURANTOIN
     Route: 048
  13. OMEGA 3 [Concomitant]
     Active Substance: OMEGA-3 FATTY ACIDS
     Dosage: 684 TO 1200 MG
     Route: 048
  14. EPIPEN [Concomitant]
     Active Substance: EPINEPHRINE
     Route: 042
  15. HCTZ [Concomitant]
     Active Substance: HYDROCHLOROTHIAZIDE
     Route: 048
  16. FERROUS SULFATE. [Concomitant]
     Active Substance: FERROUS SULFATE
     Route: 048
  17. ZELBORAF [Suspect]
     Active Substance: VEMURAFENIB
     Indication: METASTATIC MALIGNANT MELANOMA
     Dosage: 4 TAB WITH FULL GLASS OF WATER
     Route: 048
  18. ASPIRIN. [Concomitant]
     Active Substance: ASPIRIN
     Route: 048
  19. NEXIUM [Concomitant]
     Active Substance: ESOMEPRAZOLE MAGNESIUM
     Route: 048
  20. CALTRATE [Concomitant]
     Active Substance: CALCIUM CARBONATE
     Route: 048

REACTIONS (1)
  - Death [Fatal]
